FAERS Safety Report 6079970-4 (Version None)
Quarter: 2009Q1

REPORT INFORMATION
  Report Type: 
  Country: None (occurrence: None)
  Receive Date: 20090217
  Receipt Date: 20081107
  Transmission Date: 20090719
  Serious: No
  Sender: FDA-Public Use
  Company Number: A0754324A

PATIENT
  Age: 61 Year
  Sex: Male
  Weight: 100 kg

DRUGS (1)
  1. COREG CR [Suspect]
     Indication: HYPOTENSION
     Dosage: 40MG AT NIGHT
     Route: 048

REACTIONS (1)
  - TACHYCARDIA [None]
